FAERS Safety Report 9775573 (Version 2)
Quarter: 2013Q4

REPORT INFORMATION
  Report Type: Spontaneous
  Country: JP (occurrence: JP)
  Receive Date: 20131220
  Receipt Date: 20131220
  Transmission Date: 20140711
  Serious: Yes (Death, Other)
  Sender: FDA-Public Use
  Company Number: JP-OTSUKA-02100-JPN-05-0487

PATIENT
  Age: 80 Year
  Sex: Male
  Weight: 49 kg

DRUGS (18)
  1. PLETAAL [Suspect]
     Indication: BRAIN STEM INFARCTION
     Dosage: 100 MG, BID
     Route: 048
     Dates: start: 20050306, end: 20050705
  2. FAROM [Concomitant]
     Indication: PNEUMONIA
     Dosage: 200 MG, TID
     Route: 048
     Dates: start: 20050702, end: 20050705
  3. SERENACE [Concomitant]
     Indication: DELIRIUM
     Dosage: 1 DF, QD
     Route: 048
     Dates: start: 20050407, end: 20050705
  4. SERENACE [Concomitant]
     Route: 048
     Dates: start: 20050707
  5. SERENACE [Concomitant]
     Dosage: 1 MG, BID
     Route: 065
     Dates: start: 20050707
  6. FLIVAS [Concomitant]
     Indication: BENIGN PROSTATIC HYPERPLASIA
     Dosage: 25 MG, QD
     Route: 048
     Dates: start: 200407
  7. CARNACULIN [Concomitant]
     Indication: BRAIN STEM INFARCTION
     Dosage: 50 MG, TID
     Route: 048
     Dates: start: 200408
  8. CEPHADOL [Concomitant]
     Indication: BRAIN STEM INFARCTION
     Dosage: 25 MG, TID
     Route: 048
     Dates: start: 200408
  9. ADEPHOS [Concomitant]
     Indication: BRAIN STEM INFARCTION
     Dosage: 60 MG, TID
     Route: 048
     Dates: start: 200408
  10. OPALMON [Concomitant]
     Indication: BRAIN STEM INFARCTION
     Dosage: 5 UG, BID
     Route: 048
     Dates: start: 200408
  11. GASTER D [Concomitant]
     Indication: GASTRITIS
     Dosage: 10 MG, QD
     Route: 048
     Dates: start: 20050409
  12. TANATRIL [Concomitant]
     Dosage: 5 MG, QD
     Route: 048
     Dates: start: 20050419
  13. DEPAS [Concomitant]
     Indication: INSOMNIA
     Dosage: 0.5 MG, QD
     Route: 048
     Dates: start: 20050627
  14. GRAN [Concomitant]
     Indication: GRANULOCYTE COUNT DECREASED
     Dosage: 75 UG, QD
     Route: 058
     Dates: start: 20050705, end: 20050711
  15. MUCOSOLVAN [Concomitant]
     Indication: PNEUMONIA
     Dosage: 15 MG, TID
     Route: 048
     Dates: start: 20050421
  16. OMEGACIN [Concomitant]
     Indication: PNEUMONIA
     Dosage: 300 MG, BID
     Route: 041
     Dates: start: 20050621, end: 20050701
  17. VANCOMYCIN HYDROCHLORIDE [Concomitant]
     Indication: PNEUMONIA
     Dosage: 0.5 G, BID
     Route: 041
     Dates: start: 20050621, end: 20050704
  18. HABEKACIN [Concomitant]
     Indication: PNEUMONIA
     Dosage: 150 MG, QD
     Route: 041
     Dates: start: 20050705

REACTIONS (2)
  - White blood cell count decreased [Unknown]
  - Pneumonia aspiration [Fatal]
